FAERS Safety Report 12482905 (Version 2)
Quarter: 2016Q2

REPORT INFORMATION
  Report Type: Report from Study
  Country: US (occurrence: US)
  Receive Date: 20160620
  Receipt Date: 20160627
  Transmission Date: 20160815
  Serious: Yes (Other)
  Sender: FDA-Public Use
  Company Number: US-GILEAD-2016-0219332

PATIENT
  Age: 19 Year
  Sex: Female

DRUGS (1)
  1. TENOFOVIR DISOPROXIL FUMARATE. [Suspect]
     Active Substance: TENOFOVIR DISOPROXIL FUMARATE
     Indication: PERINATAL HIV INFECTION
     Dosage: 300 MG, UNK
     Route: 048

REACTIONS (3)
  - Acquired immunodeficiency syndrome [Not Recovered/Not Resolved]
  - CD4 lymphocytes decreased [Not Recovered/Not Resolved]
  - Treatment noncompliance [Not Recovered/Not Resolved]
